FAERS Safety Report 18992990 (Version 1)
Quarter: 2021Q1

REPORT INFORMATION
  Report Type: Spontaneous
  Country: CA (occurrence: CA)
  Receive Date: 20210310
  Receipt Date: 20210310
  Transmission Date: 20210420
  Serious: Yes (Other)
  Sender: FDA-Public Use
  Company Number: CA-AMERICAN REGENT INC-2021000579

PATIENT
  Age: 34 Year
  Sex: Female

DRUGS (1)
  1. VENOFER [Suspect]
     Active Substance: IRON SUCROSE
     Indication: PRODUCT USED FOR UNKNOWN INDICATION
     Dosage: UNK
     Route: 065

REACTIONS (8)
  - Feeling hot [Unknown]
  - Flushing [Unknown]
  - Pruritus [Unknown]
  - Vomiting [Unknown]
  - Swelling face [Unknown]
  - Malaise [Unknown]
  - Nausea [Unknown]
  - Rash [Unknown]
